FAERS Safety Report 10365401 (Version 1)
Quarter: 2014Q3

REPORT INFORMATION
  Report Type: Spontaneous
  Country: US (occurrence: None)
  Receive Date: 20140805
  Receipt Date: 20140805
  Transmission Date: 20150326
  Serious: Yes (Hospitalization)
  Sender: FDA-Public Use
  Company Number: None

PATIENT
  Age: 85 Year
  Sex: Male
  Weight: 69 kg

DRUGS (5)
  1. COUMADIN [Concomitant]
     Active Substance: WARFARIN SODIUM
  2. METOPROLOL SUCCINATE (METOPROLOL SUCCINATE) [Concomitant]
     Active Substance: METOPROLOL SUCCINATE
  3. SPIRIVA [Concomitant]
     Active Substance: TIOTROPIUM BROMIDE MONOHYDRATE
  4. IMBRUVICA [Suspect]
     Active Substance: IBRUTINIB
     Indication: CHRONIC LYMPHOCYTIC LEUKAEMIA
     Dosage: 3 PILLS (420 MG) QD ORAL
     Route: 048
     Dates: start: 20140713, end: 20140717
  5. JANTOVEN (WARFARIN SODIUM) [Concomitant]

REACTIONS (6)
  - Blood lactate dehydrogenase increased [None]
  - Dizziness [None]
  - Renal failure acute [None]
  - Dehydration [None]
  - Lymphocytosis [None]
  - Vomiting [None]

NARRATIVE: CASE EVENT DATE: 20140717
